FAERS Safety Report 9062545 (Version 1)
Quarter: 2013Q1

REPORT INFORMATION
  Report Type: Spontaneous
  Country: IN (occurrence: IN)
  Receive Date: 20130213
  Receipt Date: 20130213
  Transmission Date: 20140127
  Serious: Yes (Other)
  Sender: FDA-Public Use
  Company Number: IN-BAYER-2013-015129

PATIENT
  Age: 23 Year
  Sex: Female

DRUGS (3)
  1. YAZ [Suspect]
     Indication: POLYCYSTIC OVARIES
     Dosage: UNK
     Route: 048
     Dates: start: 20130125
  2. YAZ [Suspect]
     Indication: MENSTRUATION IRREGULAR
  3. DIANE 35 [Suspect]
     Indication: POLYCYSTIC OVARIES
     Dosage: UNK
     Route: 048
     Dates: end: 20130117

REACTIONS (4)
  - Vomiting [None]
  - Diarrhoea [Recovered/Resolved]
  - Abdominal distension [None]
  - Off label use [None]
